FAERS Safety Report 18525902 (Version 2)
Quarter: 2020Q4

REPORT INFORMATION
  Report Type: Report from Study
  Country: US (occurrence: US)
  Receive Date: 20201120
  Receipt Date: 20201209
  Transmission Date: 20210114
  Serious: Yes (Life-Threatening)
  Sender: FDA-Public Use
  Company Number: US-GLAXOSMITHKLINE-US2020GSK226462

PATIENT
  Age: 45 Year
  Sex: Female
  Weight: 69.84 kg

DRUGS (3)
  1. NICOTINE. [Suspect]
     Active Substance: NICOTINE
     Indication: EX-TOBACCO USER
     Dosage: 21 MG, QD
     Route: 062
     Dates: start: 20201020, end: 20201107
  2. NICOTINE POLACRILEX [Suspect]
     Active Substance: NICOTINE
     Indication: EX-TOBACCO USER
     Dosage: 4 MG, QD
     Route: 002
     Dates: start: 20201020, end: 20201028
  3. INFLUENZA VACCINE [Concomitant]
     Active Substance: INFLUENZA VIRUS VACCINE
     Dosage: UNK
     Dates: start: 20201027, end: 20201027

REACTIONS (9)
  - Face oedema [Unknown]
  - Oral pain [Unknown]
  - Swelling face [Unknown]
  - Pruritus [Unknown]
  - Chest discomfort [Unknown]
  - Condition aggravated [Unknown]
  - Ill-defined disorder [Unknown]
  - Pain in extremity [Unknown]
  - Lip swelling [Unknown]

NARRATIVE: CASE EVENT DATE: 202011
